FAERS Safety Report 6190293-5 (Version None)
Quarter: 2009Q2

REPORT INFORMATION
  Report Type: 
  Country: None (occurrence: None)
  Receive Date: 20090514
  Receipt Date: 20090504
  Transmission Date: 20091009
  Serious: Yes (Hospitalization)
  Sender: FDA-Public Use
  Company Number: A0779662A

PATIENT
  Age: 59 Year
  Sex: Female
  Weight: 109 kg

DRUGS (16)
  1. TIMENTIN [Suspect]
     Indication: CELLULITIS
     Dosage: 3.1G SIX TIMES PER DAY
     Route: 042
     Dates: start: 20090408, end: 20090412
  2. VANCOMYCIN HCL [Suspect]
     Indication: CELLULITIS
     Route: 042
     Dates: start: 20090410, end: 20090414
  3. NUBAIN [Concomitant]
  4. LOVENOX [Concomitant]
     Dosage: 40U PER DAY
  5. PROTONIX [Concomitant]
  6. TRAMADOL [Concomitant]
  7. FLEXERIL [Concomitant]
  8. MAXZIDE [Concomitant]
  9. ZOCOR [Concomitant]
  10. ZESTRIL [Concomitant]
  11. INTRAVENOUS FLUIDS [Concomitant]
  12. TYLENOL [Concomitant]
  13. PAIN MEDICATION [Concomitant]
  14. ZOSYN [Concomitant]
     Dates: start: 20090412
  15. TRIAMTERENE AND HYDROCHLOROTHIAZIDE [Concomitant]
  16. ZOCOR [Concomitant]

REACTIONS (2)
  - BLOOD CREATININE INCREASED [None]
  - DRUG INEFFECTIVE [None]
